FAERS Safety Report 9625627 (Version 1)
Quarter: 2013Q4

REPORT INFORMATION
  Report Type: Spontaneous
  Country: US (occurrence: None)
  Receive Date: 20131015
  Receipt Date: 20131015
  Transmission Date: 20140711
  Serious: No
  Sender: FDA-Public Use
  Company Number: None

PATIENT
  Age: 45 Year
  Sex: Female

DRUGS (7)
  1. TECFIDERA [Suspect]
     Indication: MULTIPLE SCLEROSIS
     Dosage: 120MG FOR 7 DAYS THEN 240MG, BID, ORAL
     Route: 048
     Dates: start: 20130927, end: 20131014
  2. NAPROSYN [Concomitant]
  3. OXYCODONE [Concomitant]
  4. FLUOXETINE [Concomitant]
  5. OXYBUTYNIN [Concomitant]
  6. LYRICA [Concomitant]
  7. VALIUM [Concomitant]

REACTIONS (1)
  - Abdominal pain upper [None]
